FAERS Safety Report 8832062 (Version 2)
Quarter: 2013Q2

REPORT INFORMATION
  Report Type: Spontaneous
  Country: US (occurrence: US)
  Receive Date: 20121009
  Receipt Date: 20130627
  Transmission Date: 20140414
  Serious: Yes (Hospitalization)
  Sender: FDA-Public Use
  Company Number: US-UCBSA-068247

PATIENT
  Age: 35 Year
  Sex: Female
  Weight: 89.3 kg

DRUGS (9)
  1. CIMZIA [Suspect]
     Indication: RHEUMATOID ARTHRITIS
     Dates: start: 201208, end: 2012
  2. CIMZIA [Suspect]
     Indication: SYSTEMIC LUPUS ERYTHEMATOSUS
     Dates: start: 201208, end: 2012
  3. CIMZIA [Suspect]
     Indication: FIBROMYALGIA
     Dates: start: 201208, end: 2012
  4. CIMZIA [Suspect]
     Indication: RHEUMATOID ARTHRITIS
     Dates: start: 2012
  5. CIMZIA [Suspect]
     Indication: SYSTEMIC LUPUS ERYTHEMATOSUS
     Dates: start: 2012
  6. CIMZIA [Suspect]
     Indication: FIBROMYALGIA
     Dates: start: 2012
  7. CIMZIA [Suspect]
     Indication: RHEUMATOID ARTHRITIS
  8. CIMZIA [Suspect]
     Indication: SYSTEMIC LUPUS ERYTHEMATOSUS
  9. CIMZIA [Suspect]
     Indication: FIBROMYALGIA

REACTIONS (5)
  - Injection site reaction [Recovered/Resolved]
  - Palpitations [Recovered/Resolved]
  - Chest discomfort [Recovered/Resolved]
  - Influenza like illness [Recovered/Resolved]
  - Rheumatoid arthritis [Unknown]
